FAERS Safety Report 8333316-7 (Version None)
Quarter: 2012Q2

REPORT INFORMATION
  Report Type: 
  Country: None (occurrence: None)
  Receive Date: 20120503
  Receipt Date: 20120425
  Transmission Date: 20120825
  Serious: Yes (Hospitalization)
  Sender: FDA-Public Use
  Company Number: FR-ASTRAZENECA-2012SE27168

PATIENT
  Age: 8407 Day
  Sex: Female

DRUGS (4)
  1. OXEOL [Suspect]
     Route: 048
     Dates: start: 20120312, end: 20120312
  2. CANDESARTAN CILEXETIL AND HYDROCHLOROTHIAZIDE [Suspect]
     Dosage: 16MG/12.5MG PER TABLET, 29 TABLETS AT ONCE
     Route: 048
     Dates: start: 20120312, end: 20120312
  3. AUGMENTIN [Suspect]
     Route: 048
     Dates: start: 20120312, end: 20120312
  4. MINOCYCLINE HYDROCHLORIDE [Suspect]
     Route: 048
     Dates: start: 20120312, end: 20120312

REACTIONS (3)
  - POISONING DELIBERATE [None]
  - HYPOTENSION [None]
  - TACHYCARDIA [None]
